FAERS Safety Report 14908305 (Version 1)
Quarter: 2018Q2

REPORT INFORMATION
  Report Type: Spontaneous
  Country: DE (occurrence: DE)
  Receive Date: 20180517
  Receipt Date: 20180517
  Transmission Date: 20180711
  Serious: Yes (Life-Threatening, Hospitalization)
  Sender: FDA-Public Use
  Company Number: DE-PFIZER INC-2018201596

PATIENT
  Age: 21 Year
  Sex: Male

DRUGS (12)
  1. ESCITALOPRAM [Interacting]
     Active Substance: ESCITALOPRAM OXALATE
  2. SCOPOLAMIN [Concomitant]
     Active Substance: SCOPOLAMINE
  3. BACLOFEN. [Concomitant]
     Active Substance: BACLOFEN
  4. LORAZEPAM. [Concomitant]
     Active Substance: LORAZEPAM
     Dosage: 1 MG EVERY DAY
  5. PREDNISOLONE. [Concomitant]
     Active Substance: PREDNISOLONE
     Dosage: 10 MG, UNK
  6. COTRIMOXAZOL [Concomitant]
     Active Substance: SULFAMETHOXAZOLE\TRIMETHOPRIM
     Dosage: 2 DOSAGE FORM  EVERY DAY
     Route: 042
     Dates: start: 20180315, end: 20180319
  7. ESOMEPRAZOLE MAGNESIUM. [Interacting]
     Active Substance: ESOMEPRAZOLE MAGNESIUM
     Dosage: 40 MG, UNK
  8. LEVETIRACETAM. [Concomitant]
     Active Substance: LEVETIRACETAM
     Dosage: 2 DOSE FORMS (3G) EVERY DAY
  9. NALOXONE/TILIDINE [Concomitant]
     Dosage: 10 GTT, UNK
  10. L-THYROXIN [Concomitant]
     Active Substance: LEVOTHYROXINE SODIUM
     Dosage: 75 UG, UNK
  11. LINEZOLID. [Suspect]
     Active Substance: LINEZOLID
     Indication: PNEUMONIA STAPHYLOCOCCAL
     Dosage: 2 DOSAGE FORMS EVERY DAY
     Route: 042
     Dates: start: 20180315, end: 20180318
  12. IVABRADINE [Concomitant]
     Active Substance: IVABRADINE
     Dosage: 15MG, EVERY DAY

REACTIONS (4)
  - Status epilepticus [Not Recovered/Not Resolved]
  - Serotonin syndrome [Not Recovered/Not Resolved]
  - Body temperature increased [Not Recovered/Not Resolved]
  - Drug interaction [Not Recovered/Not Resolved]

NARRATIVE: CASE EVENT DATE: 20180317
